FAERS Safety Report 6603845-2 (Version None)
Quarter: 2010Q1

REPORT INFORMATION
  Report Type: 
  Country: None (occurrence: None)
  Receive Date: 20100226
  Receipt Date: 20090219
  Transmission Date: 20100710
  Serious: Yes (Other)
  Sender: FDA-Public Use
  Company Number: A0769505A

PATIENT
  Age: 60 Year
  Sex: Male

DRUGS (2)
  1. LAMICTAL CD [Suspect]
     Dosage: 100MG TWICE PER DAY
     Route: 048
     Dates: start: 20050101
  2. AMANTADINE HCL [Concomitant]

REACTIONS (3)
  - CONVULSION [None]
  - DRUG INEFFECTIVE [None]
  - RASH MACULAR [None]
